FAERS Safety Report 16939628 (Version 1)
Quarter: 2019Q4

REPORT INFORMATION
  Report Type: Spontaneous
  Country: SE (occurrence: SE)
  Receive Date: 20191021
  Receipt Date: 20191021
  Transmission Date: 20200122
  Serious: Yes (Other)
  Sender: FDA-Public Use
  Company Number: SE-TEVA-2019-SE-1123545

PATIENT
  Age: 32 Year
  Sex: Female

DRUGS (2)
  1. ISOTRETINOIN. [Suspect]
     Active Substance: ISOTRETINOIN
     Route: 048
     Dates: start: 2014
  2. ISOTRETINOIN. [Suspect]
     Active Substance: ISOTRETINOIN
     Route: 048
     Dates: start: 201812, end: 201904

REACTIONS (1)
  - Basedow^s disease [Not Recovered/Not Resolved]

NARRATIVE: CASE EVENT DATE: 201506
